FAERS Safety Report 8454836-0 (Version None)
Quarter: 2012Q2

REPORT INFORMATION
  Report Type: 
  Country: None (occurrence: None)
  Receive Date: 20120621
  Receipt Date: 20120615
  Transmission Date: 20120825
  Serious: Yes (Hospitalization)
  Sender: FDA-Public Use
  Company Number: US-CELGENEUS-163-21880-12041898

PATIENT
  Sex: Female
  Weight: 108.9 kg

DRUGS (3)
  1. ASPIRIN [Concomitant]
     Dosage: 325 MILLIGRAM
     Route: 048
  2. REVLIMID [Suspect]
     Dosage: 5 MILLIGRAM
     Route: 048
     Dates: start: 20120326
  3. REVLIMID [Suspect]
     Indication: MULTIPLE MYELOMA
     Dosage: 10 MILLIGRAM
     Route: 048
     Dates: start: 20101115, end: 20100101

REACTIONS (2)
  - THROMBOCYTOPENIA [None]
  - ULCER HAEMORRHAGE [None]
